FAERS Safety Report 7146194-9 (Version None)
Quarter: 2010Q4

REPORT INFORMATION
  Report Type: 
  Country: None (occurrence: None)
  Receive Date: 20101208
  Receipt Date: 20101129
  Transmission Date: 20110411
  Serious: Yes (Other)
  Sender: FDA-Public Use
  Company Number: PHHY2010US80048

PATIENT
  Sex: Female

DRUGS (2)
  1. GLEEVEC [Suspect]
     Indication: CHRONIC MYELOID LEUKAEMIA
     Dosage: 400 MG, UNK
     Route: 048
     Dates: start: 20070201
  2. LOVENOX [Concomitant]
     Dosage: UNK

REACTIONS (4)
  - ABDOMINAL OPERATION [None]
  - BONE PAIN [None]
  - DIARRHOEA [None]
  - THROMBOSIS [None]
